FAERS Safety Report 4895305-4 (Version None)
Quarter: 2005Q4

REPORT INFORMATION
  Report Type: 
  Country: None (occurrence: None)
  Receive Date: 20051216
  Receipt Date: 20050818
  Transmission Date: 20060501
  Serious: No
  Sender: FDA-Public Use
  Company Number: USA0508105743

PATIENT
  Age: 39 Year
  Sex: Male

DRUGS (2)
  1. CIALIS [Suspect]
     Indication: ERECTILE DYSFUNCTION
     Dosage: 20 MG
     Dates: start: 20050201, end: 20050101
  2. PAXIL [Concomitant]

REACTIONS (2)
  - ARTHRALGIA [None]
  - BLOOD TESTOSTERONE DECREASED [None]
